FAERS Safety Report 5022572-9 (Version None)
Quarter: 2006Q2

REPORT INFORMATION
  Report Type: 
  Country: None (occurrence: None)
  Receive Date: 20060605
  Receipt Date: 20050920
  Transmission Date: 20061013
  Serious: Yes (Death)
  Sender: FDA-Public Use
  Company Number: 225662

PATIENT
  Age: 67 Year
  Sex: Female
  Weight: 72 kg

DRUGS (14)
  1. MABTHERA (RITUXIMAB) CONC FOR SOLUTION FOR INFUSION [Suspect]
     Indication: NON-HODGKIN'S LYMPHOMA
     Dosage: 875 MG/M2, INTRAVENOUS
     Route: 042
     Dates: start: 20041222, end: 20050316
  2. FLUDARABINE [Suspect]
     Indication: NON-HODGKIN'S LYMPHOMA
     Dosage: 25 MG/M2, INTRAVENOUS
     Route: 042
     Dates: start: 20041220, end: 20050316
  3. CYCLOPHOSPHAMIDE [Suspect]
     Indication: NON-HODGKIN'S LYMPHOMA
     Dosage: 1000 MG/M2, INTRAVENOUS
     Route: 042
     Dates: start: 20041220, end: 20050316
  4. IDALPREM (LORAZEPAM) [Concomitant]
  5. VANOBID (CANDICIDIN) [Concomitant]
  6. CIRPOFLOX (CIPROFLOXACIN) [Concomitant]
  7. SEPTRIN FORTE (SULFAMETHOXAZOLE, TRIMETHOPRM) [Concomitant]
  8. ACICLVIR (ACYCLOVIR) [Concomitant]
  9. VENTOLIN (ALBUTEROL/ALBUTEROL SULFATE) [Concomitant]
  10. PULMICORT [Concomitant]
  11. GANCICLOVIR [Concomitant]
  12. ITRACONAZOL (ITRACONAZOLE) [Concomitant]
  13. TEICOPLANIN (TEICOPLANIN) [Concomitant]
  14. NUBAIN [Concomitant]

REACTIONS (4)
  - ASPERGILLOSIS [None]
  - GENERAL PHYSICAL HEALTH DETERIORATION [None]
  - OBLITERATIVE BRONCHIOLITIS [None]
  - STAPHYLOCOCCAL BACTERAEMIA [None]
